FAERS Safety Report 15579545 (Version 1)
Quarter: 2018Q4

REPORT INFORMATION
  Report Type: Spontaneous
  Country: US (occurrence: US)
  Receive Date: 20181102
  Receipt Date: 20181102
  Transmission Date: 20190205
  Serious: Yes (Other)
  Sender: FDA-Public Use
  Company Number: None

PATIENT
  Age: 40 Year
  Sex: Female
  Weight: 83.25 kg

DRUGS (1)
  1. AIMOVIG [Suspect]
     Active Substance: ERENUMAB-AOOE
     Indication: MIGRAINE
     Dosage: ?          QUANTITY:1 INJECTION(S);OTHER FREQUENCY:ONCE MONTHLY;OTHER ROUTE:INJECTION?

REACTIONS (5)
  - Tremor [None]
  - Migraine [None]
  - Headache [None]
  - Drug ineffective [None]
  - Sleep disorder [None]

NARRATIVE: CASE EVENT DATE: 20180922
